FAERS Safety Report 7354772-7 (Version None)
Quarter: 2011Q1

REPORT INFORMATION
  Report Type: 
  Country: None (occurrence: None)
  Receive Date: 20110311
  Receipt Date: 20110311
  Transmission Date: 20110831
  Serious: Yes (Other)
  Sender: FDA-Public Use
  Company Number: None

PATIENT
  Age: 50 Year
  Sex: Male
  Weight: 63.5036 kg

DRUGS (1)
  1. METOLAZONE [Suspect]
     Indication: BASEDOW'S DISEASE
     Dosage: 10MG -2 TABLETS- TID PO
     Route: 048
     Dates: start: 20110303, end: 20110309

REACTIONS (16)
  - NAUSEA [None]
  - POLLAKIURIA [None]
  - OESOPHAGEAL PAIN [None]
  - DRUG DISPENSING ERROR [None]
  - DIZZINESS [None]
  - CONSTIPATION [None]
  - DEHYDRATION [None]
  - VOMITING [None]
  - HEADACHE [None]
  - DYSURIA [None]
  - DYSPNOEA [None]
  - WEIGHT DECREASED [None]
  - CHEST DISCOMFORT [None]
  - BLADDER DISCOMFORT [None]
  - MIGRAINE [None]
  - BLOOD PRESSURE DECREASED [None]
